FAERS Safety Report 20610559 (Version 1)
Quarter: 2022Q1

REPORT INFORMATION
  Report Type: Spontaneous
  Country: US (occurrence: US)
  Receive Date: 20220318
  Receipt Date: 20220318
  Transmission Date: 20220424
  Serious: Yes (Hospitalization, Other)
  Sender: FDA-Public Use
  Company Number: US-LUPIN PHARMACEUTICALS INC.-2022-03626

PATIENT
  Age: 59 Year
  Sex: Male

DRUGS (5)
  1. MOXIFLOXACIN [Suspect]
     Active Substance: MOXIFLOXACIN
     Indication: Antibiotic prophylaxis
     Dosage: UNK
     Route: 061
  2. MOXIFLOXACIN [Suspect]
     Active Substance: MOXIFLOXACIN
     Dosage: UNK UNK, QID
     Route: 061
  3. GATIFLOXACIN [Suspect]
     Active Substance: GATIFLOXACIN
     Indication: Antibiotic prophylaxis
     Dosage: UNK
     Route: 061
  4. DEXAMETHASONE [Suspect]
     Active Substance: DEXAMETHASONE
     Indication: Stevens-Johnson syndrome
     Dosage: UNK
     Route: 061
  5. DEXAMETHASONE [Suspect]
     Active Substance: DEXAMETHASONE
     Indication: Toxic epidermal necrolysis

REACTIONS (3)
  - Infective keratitis [Recovering/Resolving]
  - Corynebacterium infection [Recovering/Resolving]
  - Persistent corneal epithelial defect [Recovering/Resolving]
